FAERS Safety Report 24374895 (Version 2)
Quarter: 2025Q3

REPORT INFORMATION
  Report Type: Report from Study
  Country: EU (occurrence: EU)
  Receive Date: 20240927
  Receipt Date: 20250810
  Transmission Date: 20251021
  Serious: Yes (Life-Threatening, Hospitalization, Other)
  Sender: ALEXION PHARMACEUTICALS
  Company Number: None

PATIENT
  Age: 61 Year
  Sex: Female

DRUGS (4)
  1. DAPAGLIFLOZIN [Suspect]
     Active Substance: DAPAGLIFLOZIN
     Dates: start: 20200812, end: 20240501
  2. DAPSONE [Suspect]
     Active Substance: DAPSONE
     Dosage: 1 COMPRIMIDO/24H
     Dates: start: 20231126, end: 20231203
  3. DEXKETOPROFEN TROMETAMOL [Suspect]
     Active Substance: DEXKETOPROFEN TROMETAMOL
     Dosage: 1 COMPRIMIDO/8H
     Dates: start: 20231207, end: 20231217
  4. ACETAMINOPHEN [Concomitant]
     Active Substance: ACETAMINOPHEN
     Dosage: 1 COMPRIMIDO/8H
     Dates: start: 20231207, end: 20231217

REACTIONS (3)
  - Toxic skin eruption [Recovered/Resolved]
  - Dysphagia [Recovered/Resolved]
  - Oedema peripheral [Recovered/Resolved]

NARRATIVE: CASE EVENT DATE: 20231209
